FAERS Safety Report 8681884 (Version 2)
Quarter: 2012Q4

REPORT INFORMATION
  Report Type: Report from Study
  Country: JP (occurrence: JP)
  Receive Date: 20120725
  Receipt Date: 20121231
  Transmission Date: 20130627
  Serious: Yes (Death, Hospitalization)
  Sender: FDA-Public Use
  Company Number: JP-ROCHE-1089177

PATIENT
  Age: 76 Year
  Sex: Male
  Weight: 59 kg

DRUGS (9)
  1. PEGASYS [Suspect]
     Indication: HEPATIC CIRRHOSIS
     Dosage: Dosage is uncertain.
     Route: 058
     Dates: start: 20110708, end: 20110805
  2. PEGASYS [Suspect]
     Indication: HEPATIC CIRRHOSIS
     Route: 058
     Dates: start: 20110812, end: 20111209
  3. COPEGUS [Suspect]
     Indication: HEPATIC CIRRHOSIS
     Route: 048
     Dates: start: 20110812, end: 20111205
  4. LIVACT [Concomitant]
     Indication: HEPATIC CIRRHOSIS
     Route: 048
  5. MONILAC [Concomitant]
     Indication: HEPATIC CIRRHOSIS
     Route: 048
  6. BARACLUDE [Concomitant]
     Indication: HEPATITIS B
     Route: 048
  7. URSO [Concomitant]
     Indication: HEPATIC CIRRHOSIS
     Route: 048
     Dates: end: 20110812
  8. ALDACTONE A [Concomitant]
     Indication: HEPATIC CIRRHOSIS
     Route: 048
  9. LASIX [Concomitant]
     Indication: HEPATIC CIRRHOSIS
     Route: 048

REACTIONS (2)
  - Pleural effusion [Fatal]
  - Disease progression [Fatal]
